FAERS Safety Report 15368928 (Version 4)
Quarter: 2018Q4

REPORT INFORMATION
  Report Type: Spontaneous
  Country: ES (occurrence: ES)
  Receive Date: 20180911
  Receipt Date: 20181109
  Transmission Date: 20190204
  Serious: Yes (Hospitalization, Other)
  Sender: FDA-Public Use
  Company Number: ES-ALEXION PHARMACEUTICALS INC.-A201811612

PATIENT
  Age: 70 Year
  Sex: Female
  Weight: 50 kg

DRUGS (1)
  1. SOLIRIS [Suspect]
     Active Substance: ECULIZUMAB
     Indication: PAROXYSMAL NOCTURNAL HAEMOGLOBINURIA
     Dosage: 900 MG, 15 DAYS
     Route: 042
     Dates: start: 201108, end: 201808

REACTIONS (26)
  - Platelet count decreased [Unknown]
  - Hypothyroidism [Unknown]
  - Proteinuria [Unknown]
  - Inappropriate schedule of product administration [Recovered/Resolved]
  - Myelodysplastic syndrome [Unknown]
  - Aspartate aminotransferase increased [Unknown]
  - Haemoglobin decreased [Unknown]
  - Renal failure [Unknown]
  - Bone marrow failure [Unknown]
  - Ecthyma [Unknown]
  - Candida infection [Unknown]
  - Hypoacusis [Unknown]
  - Scab [Unknown]
  - Creatinine renal clearance decreased [Unknown]
  - Alanine aminotransferase increased [Unknown]
  - Sepsis [Recovered/Resolved]
  - Blood lactate dehydrogenase increased [Unknown]
  - Chronic gastritis [Unknown]
  - Adenocarcinoma gastric [Unknown]
  - Incorrect dose administered [Recovered/Resolved]
  - Cachexia [Unknown]
  - Pseudomonas infection [Recovered/Resolved]
  - Pyrexia [Recovered/Resolved]
  - Blood product transfusion dependent [Unknown]
  - Pallor [Unknown]
  - Tinnitus [Unknown]

NARRATIVE: CASE EVENT DATE: 201108
